FAERS Safety Report 17283738 (Version 1)
Quarter: 2020Q1

REPORT INFORMATION
  Report Type: Report from Study
  Country: SG (occurrence: SG)
  Receive Date: 20200117
  Receipt Date: 20200117
  Transmission Date: 20200409
  Serious: Yes (Hospitalization)
  Sender: FDA-Public Use
  Company Number: SG-MYLANLABS-2020M1005291

PATIENT

DRUGS (1)
  1. CYTARABINE. [Suspect]
     Active Substance: CYTARABINE
     Indication: ACUTE MYELOID LEUKAEMIA
     Dosage: HIGH-DOSE THERAPY,SCHEDULED FOR 6 CONSECUTIVE DAYS
     Route: 065

REACTIONS (3)
  - Hypotension [Unknown]
  - Sepsis [Unknown]
  - Pyrexia [Unknown]
